FAERS Safety Report 11392862 (Version 6)
Quarter: 2015Q3

REPORT INFORMATION
  Report Type: Spontaneous
  Country: CO (occurrence: CO)
  Receive Date: 20150818
  Receipt Date: 20150907
  Transmission Date: 20151125
  Serious: Yes (Death, Hospitalization, Other)
  Sender: FDA-Public Use
  Company Number: CO-BAYER-2015-397529

PATIENT
  Age: 65 Year
  Sex: Male

DRUGS (17)
  1. XOFIGO [Suspect]
     Active Substance: RADIUM RA-223 DICHLORIDE
     Indication: PROSTATE CANCER STAGE IV
     Dosage: 38030 KBQ, UNK
     Route: 042
     Dates: start: 20150702
  2. FENTANYL. [Concomitant]
     Active Substance: FENTANYL
     Route: 062
  3. METFORMIN [Concomitant]
     Active Substance: METFORMIN HYDROCHLORIDE
  4. XOFIGO [Suspect]
     Active Substance: RADIUM RA-223 DICHLORIDE
     Indication: PROSTATE CANCER STAGE IV
     Dosage: 3860 KBQ, UNK
     Route: 042
     Dates: start: 20150224
  5. ESOMEPRAZOLE [Concomitant]
     Active Substance: ESOMEPRAZOLE
  6. METOCLOPRAMIDE. [Concomitant]
     Active Substance: METOCLOPRAMIDE
  7. GOSERELIN [Concomitant]
     Active Substance: GOSERELIN
     Dosage: UNK
     Dates: start: 20120606, end: 201506
  8. XOFIGO [Suspect]
     Active Substance: RADIUM RA-223 DICHLORIDE
     Indication: PROSTATE CANCER STAGE IV
     Dosage: 3500 KBQ, UNK
     Route: 042
     Dates: start: 20150423
  9. XOFIGO [Suspect]
     Active Substance: RADIUM RA-223 DICHLORIDE
     Indication: PROSTATE CANCER STAGE IV
     Dosage: 3780 KBQ, UNK
     Route: 042
     Dates: start: 20150604
  10. ATORVASTATIN [Concomitant]
     Active Substance: ATORVASTATIN
  11. FOLIC ACID. [Concomitant]
     Active Substance: FOLIC ACID
  12. ASPIRINA [Suspect]
     Active Substance: ASPIRIN
     Dosage: 100 MG, QD
  13. BISACODYL. [Concomitant]
     Active Substance: BISACODYL
  14. XOFIGO [Suspect]
     Active Substance: RADIUM RA-223 DICHLORIDE
     Indication: METASTASES TO BONE
     Dosage: 4156 KBQ, UNK
     Route: 042
     Dates: start: 20150326
  15. FERROUS SULFATE [Concomitant]
     Active Substance: FERROUS SULFATE\FERROUS SULFATE, DRIED
  16. CYMBALTA [Concomitant]
     Active Substance: DULOXETINE HYDROCHLORIDE
  17. XOFIGO [Suspect]
     Active Substance: RADIUM RA-223 DICHLORIDE
     Indication: PROSTATE CANCER STAGE IV
     Dosage: 3535 KBQ, UNK
     Route: 042
     Dates: start: 20150731

REACTIONS (7)
  - Respiratory failure [Not Recovered/Not Resolved]
  - Multi-organ failure [Fatal]
  - Pneumonia aspiration [Not Recovered/Not Resolved]
  - Pyrexia [Unknown]
  - Subdural haematoma [Not Recovered/Not Resolved]
  - Lymphadenopathy [Unknown]
  - Headache [Not Recovered/Not Resolved]

NARRATIVE: CASE EVENT DATE: 20150731
